FAERS Safety Report 17941248 (Version 1)
Quarter: 2020Q2

REPORT INFORMATION
  Report Type: Report from Study
  Country: US (occurrence: US)
  Receive Date: 20200624
  Receipt Date: 20200624
  Transmission Date: 20200714
  Serious: Yes (Other)
  Sender: FDA-Public Use
  Company Number: US-ACTELION-A-US2020-202960

PATIENT
  Sex: Female
  Weight: 126.98 kg

DRUGS (6)
  1. OPSUMIT [Suspect]
     Active Substance: MACITENTAN
     Indication: PULMONARY ARTERIAL HYPERTENSION
     Dosage: 10 MG, QD
     Route: 048
  2. UPTRAVI [Suspect]
     Active Substance: SELEXIPAG
     Dosage: 800 MCG, BID
     Route: 048
  3. UPTRAVI [Suspect]
     Active Substance: SELEXIPAG
     Indication: PULMONARY ARTERIAL HYPERTENSION
     Dosage: 600 MCG, BID
     Route: 048
  4. SILDENAFIL CITRATE. [Concomitant]
     Active Substance: SILDENAFIL CITRATE
  5. UPTRAVI [Suspect]
     Active Substance: SELEXIPAG
     Dosage: 400 MCG
     Route: 048
  6. UPTRAVI [Suspect]
     Active Substance: SELEXIPAG
     Dosage: 200 MCG
     Route: 048

REACTIONS (10)
  - Ocular discomfort [Unknown]
  - Migraine [Unknown]
  - Thrombosis [Unknown]
  - Flushing [Unknown]
  - Nasal congestion [Unknown]
  - Visual impairment [Unknown]
  - Headache [Unknown]
  - Seasonal allergy [Unknown]
  - Wound secretion [Unknown]
  - Nausea [Recovered/Resolved]
